FAERS Safety Report 5629601-X (Version None)
Quarter: 2008Q1

REPORT INFORMATION
  Report Type: 
  Country: None (occurrence: None)
  Receive Date: 20080214
  Receipt Date: 20080204
  Transmission Date: 20080703
  Serious: Yes (Death)
  Sender: FDA-Public Use
  Company Number: 2008-01207

PATIENT
  Age: 40 Year
  Sex: Male

DRUGS (8)
  1. DIAZEPAM [Suspect]
  2. IBUPROFEN [Suspect]
  3. LORATADINE [Suspect]
  4. ZOLPIDEM TARTRATE [Suspect]
  5. QUETIAPINE FUMARATE [Suspect]
  6. BENZODIAZEPINE DERIVATIVES() [Suspect]
  7. LAMOTRIGINE [Suspect]
  8. TIAGABINE HCL [Suspect]

REACTIONS (1)
  - DEATH [None]
